FAERS Safety Report 5157556-3 (Version None)
Quarter: 2006Q4

REPORT INFORMATION
  Report Type: 
  Country: None (occurrence: None)
  Receive Date: 20061127
  Receipt Date: 20061120
  Transmission Date: 20070319
  Serious: Yes (Hospitalization)
  Sender: FDA-Public Use
  Company Number: PT-GLAXOSMITHKLINE-B0447818A

PATIENT
  Age: 37 Year
  Sex: Female

DRUGS (1)
  1. AUGMENTIN '125' [Suspect]
     Indication: ODONTOGENIC CYST
     Route: 048
     Dates: start: 20050305

REACTIONS (2)
  - OEDEMA PERIPHERAL [None]
  - URTICARIA [None]
